FAERS Safety Report 7904131-0 (Version None)
Quarter: 2011Q4

REPORT INFORMATION
  Report Type: 
  Country: None (occurrence: None)
  Receive Date: 20111109
  Receipt Date: 20111031
  Transmission Date: 20120403
  Serious: Yes (Other)
  Sender: FDA-Public Use
  Company Number: US-ASTRAZENECA-2011SE65806

PATIENT
  Age: 64 Year
  Sex: Male
  Weight: 122.5 kg

DRUGS (4)
  1. CRESTOR [Suspect]
     Route: 048
  2. LIPITOR [Suspect]
     Route: 065
     Dates: start: 20100804
  3. LIPITOR [Suspect]
     Route: 065
     Dates: start: 19980101
  4. SIMVASTATIN [Suspect]
     Route: 065

REACTIONS (4)
  - GYNAECOMASTIA [None]
  - MYOCARDIAL INFARCTION [None]
  - WEIGHT INCREASED [None]
  - BREAST PAIN [None]
